FAERS Safety Report 8818377 (Version 2)
Quarter: 2012Q4

REPORT INFORMATION
  Report Type: 
  Country: US (occurrence: US)
  Receive Date: 20121001
  Receipt Date: 20121129
  Transmission Date: 20130627
  Serious: Yes (Other)
  Sender: FDA-Public Use
  Company Number: US-ASTRAZENECA-2012SE73658

PATIENT
  Age: 71 Year
  Sex: Female
  Weight: 50.8 kg

DRUGS (12)
  1. SEROQUEL [Suspect]
     Indication: BIPOLAR DISORDER
     Route: 048
     Dates: start: 201209, end: 201209
  2. SEROQUEL [Suspect]
     Indication: DEPRESSION
     Route: 048
     Dates: start: 201209, end: 201209
  3. SEROQUEL [Suspect]
     Indication: BIPOLAR DISORDER
     Route: 048
     Dates: start: 201209, end: 201209
  4. SEROQUEL [Suspect]
     Indication: DEPRESSION
     Route: 048
     Dates: start: 201209, end: 201209
  5. SEROQUEL [Suspect]
     Indication: BIPOLAR DISORDER
     Route: 048
     Dates: start: 20120919, end: 201210
  6. SEROQUEL [Suspect]
     Indication: DEPRESSION
     Route: 048
     Dates: start: 20120919, end: 201210
  7. SEROQUEL [Suspect]
     Indication: BIPOLAR DISORDER
     Route: 048
     Dates: start: 201210
  8. SEROQUEL [Suspect]
     Indication: DEPRESSION
     Route: 048
     Dates: start: 201210
  9. ATENOLOL [Suspect]
     Indication: BLOOD PRESSURE FLUCTUATION
     Route: 048
     Dates: start: 2010
  10. NICOTINE PATCH [Concomitant]
     Indication: EX-TOBACCO USER
     Route: 061
     Dates: start: 20120915
  11. PAXIL [Concomitant]
     Indication: DEPRESSION
     Route: 048
     Dates: start: 2009
  12. PAXIL [Concomitant]
     Indication: MENTAL DISORDER
     Route: 048
     Dates: start: 2009

REACTIONS (16)
  - Self-injurious ideation [Unknown]
  - Suicidal ideation [Unknown]
  - Anger [Unknown]
  - Adverse event [Unknown]
  - Memory impairment [Not Recovered/Not Resolved]
  - Diarrhoea [Not Recovered/Not Resolved]
  - Mood altered [Not Recovered/Not Resolved]
  - Lip dry [Unknown]
  - Hypoaesthesia [Unknown]
  - Palpitations [Not Recovered/Not Resolved]
  - Psychomotor hyperactivity [Not Recovered/Not Resolved]
  - Dizziness [Not Recovered/Not Resolved]
  - Somnolence [Unknown]
  - Constipation [Unknown]
  - Irritability [Not Recovered/Not Resolved]
  - Intentional drug misuse [Unknown]
